FAERS Safety Report 12744551 (Version 5)
Quarter: 2020Q4

REPORT INFORMATION
  Report Type: Spontaneous
  Country: US (occurrence: US)
  Receive Date: 20160914
  Receipt Date: 20201027
  Transmission Date: 20210113
  Serious: No
  Sender: FDA-Public Use
  Company Number: US-JAZZ-2016-US-009539

PATIENT
  Sex: Female

DRUGS (33)
  1. WESTHROID [Concomitant]
     Active Substance: THYROGLOBULIN
  2. PROMETHAZINE [Concomitant]
     Active Substance: PROMETHAZINE HYDROCHLORIDE
  3. FOLIC ACID. [Concomitant]
     Active Substance: FOLIC ACID
  4. ASCORBIC ACID. [Concomitant]
     Active Substance: ASCORBIC ACID
  5. DICLOFENAC [Suspect]
     Active Substance: DICLOFENAC
     Indication: MIGRAINE
  6. DEMEROL [Concomitant]
     Active Substance: MEPERIDINE HYDROCHLORIDE
  7. CALCIUM CITRATE WITH VITAMIN D3 [Concomitant]
     Active Substance: CALCIUM CITRATE\CHOLECALCIFEROL
  8. SPIRONOLACTONE. [Concomitant]
     Active Substance: SPIRONOLACTONE
  9. TRAZODONE HYDROCHLORIDE. [Concomitant]
     Active Substance: TRAZODONE HYDROCHLORIDE
  10. VERAPAMIL HYDROCHLORIDE. [Concomitant]
     Active Substance: VERAPAMIL HYDROCHLORIDE
  11. ALBUTEROL SULFATE. [Concomitant]
     Active Substance: ALBUTEROL SULFATE
  12. CALCARB [Concomitant]
  13. MELATONIN [Concomitant]
     Active Substance: MELATONIN
  14. ZINC ACETATE [Concomitant]
     Active Substance: ZINC ACETATE
  15. XANAX [Concomitant]
     Active Substance: ALPRAZOLAM
  16. XYREM [Suspect]
     Active Substance: SODIUM OXYBATE
     Indication: NARCOLEPSY
     Dosage: 2.25 G, BID
     Route: 048
     Dates: start: 201203, end: 201204
  17. XYREM [Suspect]
     Active Substance: SODIUM OXYBATE
     Dosage: 3 G, BID
     Route: 048
     Dates: start: 201204, end: 201209
  18. XYREM [Suspect]
     Active Substance: SODIUM OXYBATE
     Dosage: 4.5 G, BID
     Route: 048
     Dates: start: 201209
  19. TRAMADOL HCL [Concomitant]
     Active Substance: TRAMADOL HYDROCHLORIDE
  20. CHROMIUM PICOLINATE [Concomitant]
     Active Substance: CHROMIUM PICOLINATE
  21. VITAMIN D3 [Concomitant]
     Active Substance: CHOLECALCIFEROL
  22. IODINE. [Concomitant]
     Active Substance: IODINE
  23. KLONOPIN [Concomitant]
     Active Substance: CLONAZEPAM
  24. MAGNESIUM [Concomitant]
     Active Substance: MAGNESIUM
  25. NATURE-THROID [Concomitant]
     Active Substance: THYROID, PORCINE
  26. SELENIUM [Concomitant]
     Active Substance: SELENIUM
  27. ATIVAN [Concomitant]
     Active Substance: LORAZEPAM
  28. MAGNESIUM CITRATE. [Concomitant]
     Active Substance: MAGNESIUM CITRATE
  29. MOMETASONE FUROATE. [Suspect]
     Active Substance: MOMETASONE FUROATE
     Indication: PRODUCT USED FOR UNKNOWN INDICATION
  30. MINIVELLE [Concomitant]
     Active Substance: ESTRADIOL
  31. MENADIONE [Concomitant]
     Active Substance: MENADIONE
  32. ZINC GLUCONATE [Concomitant]
     Active Substance: ZINC GLUCONATE
  33. VERAPAMIL [Concomitant]
     Active Substance: VERAPAMIL HYDROCHLORIDE

REACTIONS (8)
  - Nausea [Recovered/Resolved]
  - Blood pressure fluctuation [Unknown]
  - Nasopharyngitis [Unknown]
  - Intervertebral disc protrusion [Not Recovered/Not Resolved]
  - Gastrointestinal disorder [Unknown]
  - Spondylitis [Not Recovered/Not Resolved]
  - Migraine [Unknown]
  - Loss of personal independence in daily activities [Unknown]

NARRATIVE: CASE EVENT DATE: 2016
